FAERS Safety Report 8986739 (Version 1)
Quarter: 2012Q4

REPORT INFORMATION
  Report Type: Spontaneous
  Country: US (occurrence: None)
  Receive Date: 20121217
  Receipt Date: 20121217
  Transmission Date: 20130627
  Serious: Yes (Other)
  Sender: FDA-Public Use
  Company Number: TPA2012A09686

PATIENT
  Age: 54 Year
  Sex: Male
  Weight: 103 kg

DRUGS (14)
  1. DEXILANT [Suspect]
     Route: 048
  2. OMONTYS [Suspect]
     Indication: ANEMIA
     Route: 042
     Dates: start: 20121115
  3. OMONTYS [Suspect]
     Indication: DIALYSIS
     Route: 042
     Dates: start: 20121115
  4. OMONTYS [Suspect]
     Indication: CHRONIC KIDNEY DISEASE
     Route: 042
     Dates: start: 20121115
  5. RENVELA (SEVELAMER CARBONATE) [Concomitant]
  6. LISINOPRIL (LISINOPRIL) [Concomitant]
  7. METOPROLOL (METOPROLOL) [Concomitant]
  8. LOSARTAN (LOSARTAN) [Concomitant]
  9. CARVEDILOL (CARVEDILOL) [Concomitant]
  10. ASPIRIN (ACETYLSALICYLIC ACID) [Concomitant]
  11. LANTUS (INSULIN GLARGINE) [Concomitant]
  12. NOVOLOG (INSULIN ASPART) (NO PREF. NAME) [Concomitant]
  13. DULCOLAX (BISACODYL) [Concomitant]
  14. AMLODIPINE (AMLODIPINE) [Concomitant]

REACTIONS (5)
  - Hypotension [None]
  - Loss of consciousness [None]
  - Faecal incontinence [None]
  - Urinary incontinence [None]
  - Blood pressure increased [None]
